FAERS Safety Report 12227859 (Version 1)
Quarter: 2016Q2

REPORT INFORMATION
  Report Type: Spontaneous
  Country: US (occurrence: US)
  Receive Date: 20160401
  Receipt Date: 20160401
  Transmission Date: 20160815
  Serious: Yes (Other)
  Sender: FDA-Public Use
  Company Number: US-AMGEN-USASP2016037534

PATIENT
  Age: 54 Year
  Sex: Female

DRUGS (2)
  1. ENBREL [Suspect]
     Active Substance: ETANERCEPT
     Indication: RHEUMATOID ARTHRITIS
     Dosage: 50 MG, QWK
     Route: 065
  2. METHOTREXATE [Concomitant]
     Active Substance: METHOTREXATE
     Dosage: UNK

REACTIONS (6)
  - Tendon rupture [Unknown]
  - General physical health deterioration [Unknown]
  - Oropharyngeal pain [Recovered/Resolved]
  - Hypertension [Unknown]
  - Malaise [Recovered/Resolved]
  - H1N1 influenza [Recovering/Resolving]

NARRATIVE: CASE EVENT DATE: 201602
